FAERS Safety Report 22242699 (Version 1)
Quarter: 2023Q2

REPORT INFORMATION
  Report Type: Spontaneous
  Country: US (occurrence: US)
  Receive Date: 20230424
  Receipt Date: 20230424
  Transmission Date: 20230722
  Serious: Yes (Other)
  Sender: FDA-Public Use
  Company Number: US-MYLANLABS-2023M1041835

PATIENT
  Age: 71 Year
  Sex: Female

DRUGS (1)
  1. DILANTIN [Suspect]
     Active Substance: PHENYTOIN
     Indication: Product used for unknown indication
     Dosage: 200 MILLIGRAM, QD (2 TABS OF THE 100MG EVERY NIGHT)
     Route: 065

REACTIONS (4)
  - Seizure [Unknown]
  - Insomnia [Unknown]
  - Eye disorder [Unknown]
  - Product administration error [Unknown]
